FAERS Safety Report 21067130 (Version 1)
Quarter: 2022Q3

REPORT INFORMATION
  Report Type: Spontaneous
  Country: US (occurrence: US)
  Receive Date: 20220712
  Receipt Date: 20220712
  Transmission Date: 20221026
  Serious: No
  Sender: FDA-Public Use
  Company Number: US-CIPLA LTD.-2022US03717

PATIENT
  Age: 26 Year
  Sex: Female

DRUGS (9)
  1. DARUNAVIR [Suspect]
     Active Substance: DARUNAVIR
     Indication: Antiretroviral therapy
     Dosage: DAILY DOSE OF 800 (UNITS UNSPECIFIED) UNK, (1 COURSE)
     Route: 048
  2. ATAZANAVIR [Suspect]
     Active Substance: ATAZANAVIR
     Indication: Antiretroviral therapy
     Dosage: DAILY DOSE OF 300 (UNITS UNSPECIFIED) UNK (1 COURSE)
     Route: 048
  3. ATAZANAVIR [Suspect]
     Active Substance: ATAZANAVIR
     Dosage: DAILY DOSE OF 400 (UNITS UNSPECIFIED) UNK (2 COURSE)
     Route: 048
  4. DOLUTEGRAVIR [Suspect]
     Active Substance: DOLUTEGRAVIR
     Indication: Antiretroviral therapy
     Dosage: DAILY DOSE OF 50 (UNITS UNSPECIFIED) UNK, (1 COURSE)
     Route: 048
  5. RITONAVIR [Suspect]
     Active Substance: RITONAVIR
     Indication: Antiretroviral therapy
     Dosage: DAILY DOSE OF 100 (UNITS UNSPECIFIED) UNK, (1 COURSE)
     Route: 048
  6. EMTRICITABINE\TENOFOVIR [Suspect]
     Active Substance: EMTRICITABINE\TENOFOVIR
     Indication: Antiretroviral therapy
     Dosage: DAILY DOSE OF 1 (UNITS UNSPECIFIED) UNK, (1 COURSE)
     Route: 048
  7. ZIDOVUDINE [Suspect]
     Active Substance: ZIDOVUDINE
     Indication: Antiretroviral therapy
     Dosage: DAILY DOSE OF 1 (UNITS UNSPECIFIED) UNK, (2 COURSE)
     Route: 042
  8. ZIDOVUDINE [Suspect]
     Active Substance: ZIDOVUDINE
     Dosage: DAILY DOSE OF 2 (UNITS UNSPECIFIED) UNK, (1 COURSE)
     Route: 042
  9. COBICISTAT\ELVITEGRAVIR\EMTRICITABINE\TENOFOVIR [Suspect]
     Active Substance: COBICISTAT\ELVITEGRAVIR\EMTRICITABINE\TENOFOVIR
     Indication: Antiretroviral therapy
     Dosage: DAILY DOSE OF 1 (UNITS UNSPECIFIED) UNK, (1 COURSE)
     Route: 048

REACTIONS (2)
  - Exposure during pregnancy [Unknown]
  - No adverse event [Unknown]
